FAERS Safety Report 6141842-4 (Version None)
Quarter: 2009Q2

REPORT INFORMATION
  Report Type: 
  Country: None (occurrence: None)
  Receive Date: 20090402
  Receipt Date: 20090318
  Transmission Date: 20091009
  Serious: Yes (Hospitalization)
  Sender: FDA-Public Use
  Company Number: JP-PFIZER INC-2009187716

PATIENT

DRUGS (5)
  1. TOPOTECIN [Suspect]
     Indication: OVARIAN CANCER
     Dosage: 140 MG; INTERMITTENT
     Route: 041
     Dates: start: 20081216, end: 20090226
  2. MITOMYCIN [Concomitant]
     Indication: OVARIAN CANCER
     Dosage: 10 MG, 1X/DAY; INTERMITTENT
     Route: 042
     Dates: start: 20081216, end: 20090212
  3. KYTRIL [Concomitant]
     Dosage: 3 MG, 1X/DAY
     Route: 041
     Dates: start: 20081216, end: 20090226
  4. RINDERON [Concomitant]
     Dosage: 8 MG, 1X/DAY
     Route: 041
     Dates: start: 20081216, end: 20090226
  5. NEUTROGIN [Concomitant]
     Dosage: 100 UG, 1X/DAY
     Route: 058
     Dates: start: 20090119, end: 20090313

REACTIONS (1)
  - PULMONARY FIBROSIS [None]
